FAERS Safety Report 7274990-6 (Version None)
Quarter: 2011Q1

REPORT INFORMATION
  Report Type: 
  Country: None (occurrence: None)
  Receive Date: 20110204
  Receipt Date: 20110131
  Transmission Date: 20110831
  Serious: Yes (Hospitalization)
  Sender: FDA-Public Use
  Company Number: GB-ROCHE-745422

PATIENT
  Sex: Male

DRUGS (7)
  1. METHOTREXATE [Concomitant]
     Indication: RHEUMATOID ARTHRITIS
     Dates: start: 19950101
  2. HYDROXYCHLOROQUINE [Concomitant]
     Indication: RHEUMATOID ARTHRITIS
     Dates: start: 20080130
  3. TOCILIZUMAB [Suspect]
     Dosage: CORE STUDY:MA21573
     Route: 042
  4. FOLIC ACID [Concomitant]
     Dates: start: 19950101
  5. TOCILIZUMAB [Suspect]
     Indication: RHEUMATOID ARTHRITIS
     Dosage: FORM : INFUSION.  DATE OF LAST DOSE PRIOR TO SAE:DECEMBER 2009.
     Route: 042
     Dates: start: 20090801, end: 20100101
  6. CO-DYDRAMOL [Concomitant]
     Dosage: STRENGTH:8/500
     Dates: start: 19950101, end: 20090716
  7. DICLOFENAC [Concomitant]
     Dates: start: 19950101, end: 20100804

REACTIONS (2)
  - COLITIS ULCERATIVE [None]
  - NO THERAPEUTIC RESPONSE [None]
